FAERS Safety Report 4645380-7 (Version None)
Quarter: 2005Q2

REPORT INFORMATION
  Report Type: 
  Country: None (occurrence: None)
  Receive Date: 20050331
  Receipt Date: 20050228
  Transmission Date: 20051028
  Serious: Yes (Hospitalization)
  Sender: FDA-Public Use
  Company Number: 05P-163-0292274-00

PATIENT
  Age: 68 Year
  Sex: Male
  Weight: 72.5755 kg

DRUGS (12)
  1. HUMIRA [Suspect]
     Indication: RHEUMATOID ARTHRITIS
     Dosage: 40 MG, 1 IN 2 WK, SUBCUTANEOUS
     Route: 058
     Dates: start: 20040101, end: 20050223
  2. CLOPIDOGREL BISULFATE [Concomitant]
  3. POTASSIUM CHLORIDE [Concomitant]
  4. FUROSEMIDE [Concomitant]
  5. PREDNISONE [Concomitant]
  6. AMIODARONE HCL [Concomitant]
  7. FOLIC ACID [Concomitant]
  8. METOPROLOL [Concomitant]
  9. CAPTOPRIL [Concomitant]
  10. SPIRONOLACTONE [Concomitant]
  11. ASPIRIN [Concomitant]
  12. FAMOTIDINE [Concomitant]

REACTIONS (1)
  - MYOCARDIAL INFARCTION [None]
